FAERS Safety Report 18335328 (Version 10)
Quarter: 2023Q4

REPORT INFORMATION
  Report Type: Spontaneous
  Country: JP (occurrence: JP)
  Receive Date: 20201001
  Receipt Date: 20231030
  Transmission Date: 20240110
  Serious: Yes (Other)
  Sender: FDA-Public Use
  Company Number: NVSJ2020JP009290

PATIENT
  Age: 82 Year
  Sex: Male
  Weight: 67 kg

DRUGS (2)
  1. BEOVU [Suspect]
     Active Substance: BROLUCIZUMAB-DBLL
     Indication: Age-related macular degeneration
     Dosage: 6 MG
     Route: 031
     Dates: start: 20200817, end: 20200817
  2. BEOVU [Suspect]
     Active Substance: BROLUCIZUMAB-DBLL
     Dosage: 6 MG
     Route: 031
     Dates: start: 20200914, end: 20200914

REACTIONS (9)
  - Uveitis [Recovered/Resolved]
  - Vitreal cells [Unknown]
  - Blindness transient [Recovered/Resolved]
  - Posterior capsule opacification [Unknown]
  - Concomitant disease aggravated [Unknown]
  - Iritis [Recovered/Resolved]
  - Eye inflammation [Recovered/Resolved]
  - Anterior chamber cell [Recovered/Resolved]
  - Vitreous opacities [Recovering/Resolving]

NARRATIVE: CASE EVENT DATE: 20200915
